FAERS Safety Report 12848948 (Version 2)
Quarter: 2016Q4

REPORT INFORMATION
  Report Type: Spontaneous
  Country: US (occurrence: US)
  Receive Date: 20161014
  Receipt Date: 20161111
  Transmission Date: 20170207
  Serious: No
  Sender: FDA-Public Use
  Company Number: US-ACTELION-A-NJ2016-138883

PATIENT
  Age: 7 Month
  Sex: Female

DRUGS (4)
  1. TRACLEER [Suspect]
     Active Substance: BOSENTAN
     Dosage: 11.25 MG, UNK
     Route: 048
  2. TRACLEER [Suspect]
     Active Substance: BOSENTAN
     Dosage: 11.25 MG, BID
     Route: 048
  3. SILDENAFIL. [Concomitant]
     Active Substance: SILDENAFIL
  4. TRACLEER [Suspect]
     Active Substance: BOSENTAN
     Indication: PULMONARY ARTERIAL HYPERTENSION
     Dosage: 5.625 MG, BID
     Route: 048
     Dates: start: 20160613

REACTIONS (5)
  - Nasal congestion [Unknown]
  - Liver function test increased [Unknown]
  - Nasopharyngitis [Unknown]
  - Cough [Unknown]
  - Vomiting [Unknown]

NARRATIVE: CASE EVENT DATE: 201609
